FAERS Safety Report 16582201 (Version 11)
Quarter: 2019Q4

REPORT INFORMATION
  Report Type: Spontaneous
  Country: US (occurrence: US)
  Receive Date: 20190717
  Receipt Date: 20191017
  Transmission Date: 20200122
  Serious: No
  Sender: FDA-Public Use
  Company Number: US-UNITED THERAPEUTICS-UNT-2019-011973

PATIENT
  Age: 60 Year
  Sex: Female
  Weight: 99.32 kg

DRUGS (14)
  1. ORENITRAM [Suspect]
     Active Substance: TREPROSTINIL
     Dosage: 1.125 MG, TID
     Route: 048
     Dates: end: 201909
  2. ORENITRAM [Suspect]
     Active Substance: TREPROSTINIL
     Indication: PULMONARY ARTERIAL HYPERTENSION
     Dosage: UNK
     Route: 048
  3. ORENITRAM [Suspect]
     Active Substance: TREPROSTINIL
     Indication: PULMONARY ARTERIAL HYPERTENSION
     Dosage: UNK
     Route: 048
  4. ORENITRAM [Suspect]
     Active Substance: TREPROSTINIL
     Indication: PULMONARY ARTERIAL HYPERTENSION
  5. ORENITRAM [Suspect]
     Active Substance: TREPROSTINIL
     Indication: PULMONARY ARTERIAL HYPERTENSION
     Dosage: 0.625 MG, TID
     Route: 048
     Dates: start: 20190611, end: 201909
  6. ORENITRAM [Suspect]
     Active Substance: TREPROSTINIL
     Indication: PULMONARY ARTERIAL HYPERTENSION
     Dosage: UNK
     Route: 048
  7. ORENITRAM [Suspect]
     Active Substance: TREPROSTINIL
     Indication: PULMONARY ARTERIAL HYPERTENSION
  8. ORENITRAM [Suspect]
     Active Substance: TREPROSTINIL
     Indication: PULMONARY ARTERIAL HYPERTENSION
     Dosage: 1.375 MG, TID
     Route: 048
     Dates: start: 20190809
  9. ORENITRAM [Suspect]
     Active Substance: TREPROSTINIL
     Indication: PULMONARY ARTERIAL HYPERTENSION
  10. OPSUMIT [Concomitant]
     Active Substance: MACITENTAN
     Indication: PRODUCT USED FOR UNKNOWN INDICATION
     Route: 065
  11. ORENITRAM [Suspect]
     Active Substance: TREPROSTINIL
     Indication: PULMONARY ARTERIAL HYPERTENSION
     Dosage: UNK
     Route: 048
  12. XARELTO [Concomitant]
     Active Substance: RIVAROXABAN
     Indication: PRODUCT USED FOR UNKNOWN INDICATION
     Dosage: UNK
     Route: 065
  13. ORENITRAM [Suspect]
     Active Substance: TREPROSTINIL
     Indication: PULMONARY ARTERIAL HYPERTENSION
     Dosage: 1.25 MG, TID
     Route: 048
  14. ORENITRAM [Suspect]
     Active Substance: TREPROSTINIL
     Indication: PULMONARY ARTERIAL HYPERTENSION

REACTIONS (29)
  - Muscle spasms [Unknown]
  - Musculoskeletal pain [Unknown]
  - Cyanosis [Unknown]
  - Abdominal pain [Unknown]
  - Product use issue [Unknown]
  - Migraine [Unknown]
  - Cough [Unknown]
  - Swelling [Unknown]
  - Arthralgia [Not Recovered/Not Resolved]
  - Fall [Recovered/Resolved]
  - Asthenia [Unknown]
  - Insomnia [Not Recovered/Not Resolved]
  - Diarrhoea [Not Recovered/Not Resolved]
  - Pain in jaw [Not Recovered/Not Resolved]
  - Anal incontinence [Not Recovered/Not Resolved]
  - Oxygen saturation decreased [Unknown]
  - Decreased appetite [Not Recovered/Not Resolved]
  - Dizziness [Unknown]
  - Malaise [Not Recovered/Not Resolved]
  - Pain in extremity [Not Recovered/Not Resolved]
  - Loss of personal independence in daily activities [Unknown]
  - Somnolence [Unknown]
  - Retching [Not Recovered/Not Resolved]
  - Balance disorder [Unknown]
  - Blood potassium decreased [Not Recovered/Not Resolved]
  - Constipation [Not Recovered/Not Resolved]
  - Product communication issue [Unknown]
  - Musculoskeletal stiffness [Unknown]
  - Fatigue [Not Recovered/Not Resolved]

NARRATIVE: CASE EVENT DATE: 2019
